FAERS Safety Report 6019506-7 (Version None)
Quarter: 2008Q4

REPORT INFORMATION
  Report Type: 
  Country: None (occurrence: None)
  Receive Date: 20081224
  Receipt Date: 20081219
  Transmission Date: 20090506
  Serious: Yes (Death)
  Sender: FDA-Public Use
  Company Number: TR-SANOFI-SYNTHELABO-D01200809458

PATIENT
  Sex: Male
  Weight: 86 kg

DRUGS (12)
  1. CLOPIDOGREL [Suspect]
     Indication: ACUTE CORONARY SYNDROME
     Dosage: 300 MG (+PLACEBO) D1 FOLLOWED BY 75 MG (+PLACEBO) D2 TO D7; 75 MG FROM D8 TO 30
     Route: 048
  2. N ACETYLCYSTEIN [Concomitant]
     Route: 065
  3. IPRATROPIUM BROMIDE AND ALBUTEROL SULFATE [Concomitant]
  4. LEVOFLOXACIN [Concomitant]
     Route: 065
  5. ACETAMINOPHEN [Concomitant]
     Dosage: 500 MG
     Route: 065
  6. LANSOPRAZOLE [Concomitant]
     Dosage: 30 MG
     Route: 065
  7. ATORVASTATIN CALCIUM [Concomitant]
     Dosage: 40 MG
     Route: 065
  8. AMLODIPINE [Concomitant]
     Dosage: 10 MG
     Route: 065
  9. LISINOPRIL/ HCT [Concomitant]
     Dosage: 10/25
     Route: 065
  10. METOPROLOL [Concomitant]
     Dosage: 50 MG
     Route: 065
  11. ASA LOW DOSE [Concomitant]
     Indication: ACUTE CORONARY SYNDROME
     Dosage: AT LEAST 300 MG D1; 75-100 MG FROM D2 TO D30
     Route: 048
     Dates: start: 20080310, end: 20080319
  12. CLOPIDOGREL [Suspect]
     Indication: ACUTE CORONARY SYNDROME
     Dosage: 600 MG LD D1 FOLLOWED BY 150 MG FROM D2 TO D7; 75 MG FROM D8 TO 30
     Route: 048
     Dates: start: 20080310, end: 20080319

REACTIONS (1)
  - PLATELET COUNT DECREASED [None]
